FAERS Safety Report 5061534-2 (Version None)
Quarter: 2006Q3

REPORT INFORMATION
  Report Type: 
  Country: None (occurrence: None)
  Receive Date: 20060725
  Receipt Date: 20060719
  Transmission Date: 20061208
  Serious: Yes (Death)
  Sender: FDA-Public Use
  Company Number: FR-MERCK-0607FRA00047

PATIENT
  Age: 55 Year
  Sex: Male

DRUGS (9)
  1. ZOCOR [Suspect]
     Indication: HYPERCHOLESTEROLAEMIA
     Route: 048
     Dates: end: 20060617
  2. METFORMIN [Concomitant]
     Indication: DIABETES MELLITUS
     Route: 048
     Dates: end: 20060617
  3. LABETALOL HYDROCHLORIDE [Concomitant]
     Indication: CORONARY ARTERY DISEASE
     Route: 048
     Dates: end: 20060617
  4. LABETALOL HYDROCHLORIDE [Concomitant]
     Indication: HYPERTENSION
     Route: 048
     Dates: end: 20060617
  5. VALSARTAN [Concomitant]
     Indication: HYPERTENSION
     Route: 048
     Dates: end: 20060617
  6. ESCITALOPRAM [Suspect]
     Indication: DEPRESSION
     Route: 048
     Dates: start: 20060529, end: 20060617
  7. CLOPIDOGREL BISULFATE [Concomitant]
     Indication: THROMBOSIS PROPHYLAXIS
     Route: 048
     Dates: end: 20060617
  8. ASPIRIN [Concomitant]
     Indication: THROMBOSIS PROPHYLAXIS
     Route: 048
     Dates: end: 20060617
  9. REPAGLINIDE [Concomitant]
     Indication: DIABETES MELLITUS
     Route: 048
     Dates: end: 20060617

REACTIONS (1)
  - SUDDEN DEATH [None]
